FAERS Safety Report 24089457 (Version 1)
Quarter: 2024Q3

REPORT INFORMATION
  Report Type: Spontaneous
  Country: FR (occurrence: FR)
  Receive Date: 20240715
  Receipt Date: 20240715
  Transmission Date: 20241016
  Serious: Yes (Other)
  Sender: PIERRE FABRE MEDICAMENT
  Company Number: None

PATIENT
  Age: 35 Year
  Sex: Male
  Weight: 60.7 kg

DRUGS (6)
  1. PROPRANOLOL HYDROCHLORIDE [Suspect]
     Active Substance: PROPRANOLOL HYDROCHLORIDE
     Indication: Osteitis
     Dosage: UNK
     Route: 048
     Dates: start: 202107, end: 20210816
  2. PROPRANOLOL HYDROCHLORIDE [Suspect]
     Active Substance: PROPRANOLOL HYDROCHLORIDE
     Indication: Off label use
  3. TARGOCID [Suspect]
     Active Substance: TEICOPLANIN
     Indication: Osteitis
     Dosage: 500 MG, DAILY
     Route: 042
     Dates: start: 20210624, end: 20210815
  4. CEFEPIME [Suspect]
     Active Substance: CEFEPIME HYDROCHLORIDE
     Indication: Osteitis
     Dosage: 2 G, TID (3/DAY)
     Route: 042
     Dates: start: 20210724
  5. VALPROATE SODIUM [Suspect]
     Active Substance: VALPROATE SODIUM
     Indication: Agitation
     Dosage: 200 MG, BID (2/DAY)
     Route: 048
     Dates: start: 20210726, end: 20210728
  6. TEGRETOL [Suspect]
     Active Substance: CARBAMAZEPINE
     Indication: Agitation
     Dosage: 200 MG, BID (2/DAY)
     Route: 048
     Dates: start: 20210726, end: 20210728

REACTIONS (4)
  - Agranulocytosis [Not Recovered/Not Resolved]
  - Product use in unapproved indication [Unknown]
  - Product use issue [Unknown]
  - Off label use [Unknown]

NARRATIVE: CASE EVENT DATE: 20210727
